FAERS Safety Report 17716500 (Version 1)
Quarter: 2020Q2

REPORT INFORMATION
  Report Type: Spontaneous
  Country: US (occurrence: US)
  Receive Date: 20200428
  Receipt Date: 20200428
  Transmission Date: 20200714
  Serious: Yes (Hospitalization)
  Sender: FDA-Public Use
  Company Number: US-SUN PHARMACEUTICAL INDUSTRIES LTD-2020R1-244456

PATIENT
  Age: 80 Year
  Sex: Male
  Weight: 83 kg

DRUGS (4)
  1. GABAPENTIN. [Suspect]
     Active Substance: GABAPENTIN
     Indication: ABDOMINAL PAIN
     Dosage: UNK
     Route: 065
  2. ACETAMINOPHEN. [Suspect]
     Active Substance: ACETAMINOPHEN
     Indication: ABDOMINAL PAIN
     Dosage: UNK
     Route: 065
  3. OXYCODONE [Suspect]
     Active Substance: OXYCODONE
     Indication: POST LAMINECTOMY SYNDROME
     Dosage: 5 MILLIGRAM, QID (EVERY 6 HOURS)
     Route: 065
  4. MORPHINE [Suspect]
     Active Substance: MORPHINE
     Indication: POST LAMINECTOMY SYNDROME
     Dosage: 1.9 MILLIGRAM, DAILY
     Route: 037

REACTIONS (3)
  - Functional gastrointestinal disorder [Recovering/Resolving]
  - Drug intolerance [Unknown]
  - Therapeutic product effect incomplete [Unknown]
